FAERS Safety Report 6774032-2 (Version None)
Quarter: 2010Q2

REPORT INFORMATION
  Report Type: 
  Country: None (occurrence: None)
  Receive Date: 20100616
  Receipt Date: 20100616
  Transmission Date: 20101027
  Serious: Yes (Other)
  Sender: FDA-Public Use
  Company Number: None

PATIENT
  Age: 50 Year
  Sex: Female
  Weight: 61.2356 kg

DRUGS (2)
  1. ZICAM GEL SWABS HOMEPATHIC ZICAM [Suspect]
     Indication: HYPERSENSITIVITY
     Dates: start: 20100210, end: 20100213
  2. ZICAM GEL SWABS HOMEPATHIC ZICAM [Suspect]
     Indication: HYPERSENSITIVITY
     Dates: start: 20100213, end: 20100220

REACTIONS (2)
  - AGEUSIA [None]
  - ANOSMIA [None]
